FAERS Safety Report 7476675-X (Version None)
Quarter: 2011Q2

REPORT INFORMATION
  Report Type: 
  Country: None (occurrence: None)
  Receive Date: 20110512
  Receipt Date: 20110506
  Transmission Date: 20111010
  Serious: Yes (Other)
  Sender: FDA-Public Use
  Company Number: FI-PFIZER INC-2011076783

PATIENT
  Age: 45 Year
  Sex: Female

DRUGS (5)
  1. ACETYLSALICYLIC ACID [Concomitant]
     Dosage: 100 MG, 1X/DAY
  2. LYRICA [Suspect]
     Indication: NEURALGIA
     Dosage: 25 MG, 2X/DAY
     Dates: start: 20110309, end: 20110504
  3. KALCIPOS-D [Concomitant]
     Dosage: 1 DF, 2X/DAY
  4. SOTACOR [Concomitant]
     Dosage: 120 MG, 2X/DAY
  5. LYRICA [Suspect]
     Dosage: 50MG PLUS 25MG
     Dates: start: 20110505

REACTIONS (1)
  - ARRHYTHMIA [None]
